FAERS Safety Report 13533156 (Version 7)
Quarter: 2020Q3

REPORT INFORMATION
  Report Type: Report from Study
  Country: JP (occurrence: JP)
  Receive Date: 20170510
  Receipt Date: 20180703
  Transmission Date: 20201104
  Serious: Yes (Hospitalization)
  Sender: FDA-Public Use
  Company Number: JP-ASTRAZENECA-2017SE35872

PATIENT
  Age: 21961 Day
  Sex: Male

DRUGS (52)
  1. DIFLUPREDNATE [Concomitant]
     Active Substance: DIFLUPREDNATE
     Indication: RASH
     Dosage: 1 APPLICATION, BID
     Route: 003
     Dates: start: 20161209, end: 20161216
  2. PREDONINE [Concomitant]
     Active Substance: PREDNISOLONE
     Indication: PROPHYLAXIS
     Route: 048
     Dates: start: 20161216, end: 20161216
  3. PREDONINE [Concomitant]
     Active Substance: PREDNISOLONE
     Indication: PROPHYLAXIS
     Route: 048
     Dates: start: 20161217, end: 20161221
  4. PREDONINE [Concomitant]
     Active Substance: PREDNISOLONE
     Indication: THYROIDITIS
     Route: 048
     Dates: start: 20170125, end: 20170221
  5. PREDONINE [Concomitant]
     Active Substance: PREDNISOLONE
     Indication: THYROIDITIS
     Route: 048
     Dates: start: 20171018
  6. NIPRADILOL [Concomitant]
     Active Substance: NIPRADILOL
     Indication: GLAUCOMA
     Dosage: 1 APPLICATION, BID
     Route: 047
     Dates: end: 20170506
  7. PREDONINE [Concomitant]
     Active Substance: PREDNISOLONE
     Indication: THYROIDITIS
     Route: 048
     Dates: start: 20161213, end: 20161213
  8. PREDONINE [Concomitant]
     Active Substance: PREDNISOLONE
     Indication: THYROIDITIS
     Route: 048
     Dates: start: 20161214, end: 20161214
  9. PREDONINE [Concomitant]
     Active Substance: PREDNISOLONE
     Indication: THYROIDITIS
     Route: 048
     Dates: start: 20161222, end: 20161228
  10. PREDONINE [Concomitant]
     Active Substance: PREDNISOLONE
     Indication: PROPHYLAXIS
     Route: 048
     Dates: start: 20170118, end: 20170131
  11. PREDONINE [Concomitant]
     Active Substance: PREDNISOLONE
     Indication: PROPHYLAXIS
     Route: 048
     Dates: start: 20170222, end: 20170301
  12. REBAMIPIDE [Concomitant]
     Active Substance: REBAMIPIDE
     Indication: PROPHYLAXIS
     Dosage: 100.0MG AS REQUIRED
     Route: 048
     Dates: start: 20161211
  13. PREDONINE [Concomitant]
     Active Substance: PREDNISOLONE
     Indication: PROPHYLAXIS
     Route: 048
     Dates: start: 20161214, end: 20161214
  14. PREDONINE [Concomitant]
     Active Substance: PREDNISOLONE
     Indication: THYROIDITIS
     Route: 048
     Dates: start: 20161217, end: 20161221
  15. PREDONINE [Concomitant]
     Active Substance: PREDNISOLONE
     Indication: PROPHYLAXIS
     Route: 048
     Dates: start: 20161222, end: 20161228
  16. PREDONINE [Concomitant]
     Active Substance: PREDNISOLONE
     Indication: PROPHYLAXIS
     Route: 048
     Dates: start: 20170107, end: 20170117
  17. PREDONINE [Concomitant]
     Active Substance: PREDNISOLONE
     Indication: THYROIDITIS
     Route: 048
     Dates: start: 20170107, end: 20170117
  18. PREDONINE [Concomitant]
     Active Substance: PREDNISOLONE
     Indication: PROPHYLAXIS
     Route: 048
     Dates: start: 20170118, end: 20170124
  19. PREDONINE [Concomitant]
     Active Substance: PREDNISOLONE
     Indication: THYROIDITIS
     Route: 048
     Dates: start: 20170118, end: 20170131
  20. TREMELIMUMAB. [Suspect]
     Active Substance: TREMELIMUMAB
     Indication: BLADDER TRANSITIONAL CELL CARCINOMA
     Route: 042
     Dates: start: 20170214, end: 20170214
  21. LOXOPROFEN SODIUM [Concomitant]
     Active Substance: LOXOPROFEN SODIUM
     Indication: INTERVERTEBRAL DISC PROTRUSION
     Dosage: 60.0MG AS REQUIRED
     Route: 048
     Dates: start: 20161211, end: 20170131
  22. PEKIRON [Concomitant]
     Indication: TINEA PEDIS
     Dosage: 1 APPLICATION, QD
     Route: 003
  23. PREDONINE [Concomitant]
     Active Substance: PREDNISOLONE
     Indication: THYROIDITIS
     Route: 048
     Dates: start: 20161229, end: 20170106
  24. PREDONINE [Concomitant]
     Active Substance: PREDNISOLONE
     Indication: PROPHYLAXIS
     Route: 048
     Dates: start: 20171004, end: 20171017
  25. TREMELIMUMAB. [Suspect]
     Active Substance: TREMELIMUMAB
     Indication: BLADDER TRANSITIONAL CELL CARCINOMA
     Route: 042
     Dates: end: 20170407
  26. LOXOPROFEN SODIUM [Concomitant]
     Active Substance: LOXOPROFEN SODIUM
     Indication: INTERVERTEBRAL DISC PROTRUSION
     Dosage: 100.0MG AS REQUIRED
     Route: 003
     Dates: start: 20170413, end: 20170414
  27. PREDONINE [Concomitant]
     Active Substance: PREDNISOLONE
     Indication: THYROIDITIS
     Route: 048
     Dates: start: 20171004, end: 20171017
  28. PREDONINE [Concomitant]
     Active Substance: PREDNISOLONE
     Indication: PROPHYLAXIS
     Route: 048
     Dates: start: 20161213, end: 20161213
  29. PREDONINE [Concomitant]
     Active Substance: PREDNISOLONE
     Indication: PROPHYLAXIS
     Route: 048
     Dates: start: 20170125, end: 20170221
  30. PREDONINE [Concomitant]
     Active Substance: PREDNISOLONE
     Indication: PROPHYLAXIS
     Route: 048
     Dates: start: 20180110, end: 20180123
  31. PREDONINE [Concomitant]
     Active Substance: PREDNISOLONE
     Indication: THYROIDITIS
     Route: 048
     Dates: start: 20180110, end: 20180123
  32. PREDONINE [Concomitant]
     Active Substance: PREDNISOLONE
     Indication: THYROIDITIS
     Route: 048
     Dates: start: 20180404, end: 20180424
  33. MEDI4736 [Suspect]
     Active Substance: DURVALUMAB
     Indication: BLADDER TRANSITIONAL CELL CARCINOMA
     Route: 042
     Dates: start: 20161201, end: 20161201
  34. MEDI4736 [Suspect]
     Active Substance: DURVALUMAB
     Indication: BLADDER TRANSITIONAL CELL CARCINOMA
     Route: 042
     Dates: end: 20170407
  35. TREMELIMUMAB. [Suspect]
     Active Substance: TREMELIMUMAB
     Indication: BLADDER TRANSITIONAL CELL CARCINOMA
     Route: 042
     Dates: start: 20161201, end: 20161201
  36. LOXOPROFEN SODIUM [Concomitant]
     Active Substance: LOXOPROFEN SODIUM
     Indication: INTERVERTEBRAL DISC PROTRUSION
     Dosage: 100.0MG AS REQUIRED
     Route: 003
  37. LOXOPROFEN SODIUM [Concomitant]
     Active Substance: LOXOPROFEN SODIUM
     Indication: INTERVERTEBRAL DISC PROTRUSION
     Dosage: 60.0MG AS REQUIRED
     Route: 048
     Dates: start: 20170201, end: 20170201
  38. LOXOPROFEN SODIUM [Concomitant]
     Active Substance: LOXOPROFEN SODIUM
     Indication: INTERVERTEBRAL DISC PROTRUSION
     Dosage: 60.0MG AS REQUIRED
     Route: 048
     Dates: start: 20170208
  39. DIFLUPREDNATE [Concomitant]
     Active Substance: DIFLUPREDNATE
     Indication: RASH
     Dosage: 1 APPLICATION, PRN
     Route: 003
     Dates: start: 20170211, end: 20170305
  40. PREDONINE [Concomitant]
     Active Substance: PREDNISOLONE
     Indication: THYROIDITIS
     Route: 048
     Dates: start: 20161216, end: 20161216
  41. PREDONINE [Concomitant]
     Active Substance: PREDNISOLONE
     Indication: THYROIDITIS
     Route: 048
     Dates: start: 20170118, end: 20170124
  42. PREDONINE [Concomitant]
     Active Substance: PREDNISOLONE
     Indication: PROPHYLAXIS
     Route: 048
     Dates: start: 20180425
  43. MEDI4736 [Suspect]
     Active Substance: DURVALUMAB
     Indication: BLADDER TRANSITIONAL CELL CARCINOMA
     Route: 042
     Dates: start: 20170214, end: 20170214
  44. NIPRADILOL [Concomitant]
     Active Substance: NIPRADILOL
     Indication: GLAUCOMA
     Dosage: 1 APPLICATION, BID
     Route: 047
     Dates: start: 20170510
  45. PASTARON SOFT [Concomitant]
     Indication: DRY SKIN
     Dosage: 1 APPLICATION, QD
     Route: 003
  46. PREDONINE [Concomitant]
     Active Substance: PREDNISOLONE
     Indication: PROPHYLAXIS
     Route: 048
     Dates: start: 20161229, end: 20170106
  47. PREDONINE [Concomitant]
     Active Substance: PREDNISOLONE
     Indication: THYROIDITIS
     Route: 048
     Dates: start: 20170222, end: 20170301
  48. PREDONINE [Concomitant]
     Active Substance: PREDNISOLONE
     Indication: PROPHYLAXIS
     Route: 048
     Dates: start: 20171018
  49. PREDONINE [Concomitant]
     Active Substance: PREDNISOLONE
     Indication: PROPHYLAXIS
     Route: 048
     Dates: start: 20180124, end: 20180403
  50. PREDONINE [Concomitant]
     Active Substance: PREDNISOLONE
     Indication: THYROIDITIS
     Route: 048
     Dates: start: 20180124, end: 20180403
  51. PREDONINE [Concomitant]
     Active Substance: PREDNISOLONE
     Indication: PROPHYLAXIS
     Route: 048
     Dates: start: 20180404, end: 20180424
  52. PREDONINE [Concomitant]
     Active Substance: PREDNISOLONE
     Indication: THYROIDITIS
     Route: 048
     Dates: start: 20180425

REACTIONS (1)
  - Liver function test increased [Recovered/Resolved]

NARRATIVE: CASE EVENT DATE: 20161213
